FAERS Safety Report 22186858 (Version 1)
Quarter: 2023Q2

REPORT INFORMATION
  Report Type: Spontaneous
  Country: CN (occurrence: CN)
  Receive Date: 20230407
  Receipt Date: 20230407
  Transmission Date: 20230721
  Serious: Yes (Other)
  Sender: FDA-Public Use
  Company Number: CN-PFIZER INC-PV202300063517

PATIENT
  Age: 14 Year
  Sex: Male

DRUGS (6)
  1. CYTARABINE [Suspect]
     Active Substance: CYTARABINE
     Indication: Acute lymphocytic leukaemia
     Dosage: 100 MG
     Dates: start: 20230314, end: 20230314
  2. CYTARABINE [Suspect]
     Active Substance: CYTARABINE
     Dosage: 200 MG, 1X/DAY
     Route: 041
     Dates: start: 20230316, end: 20230317
  3. CYTARABINE [Suspect]
     Active Substance: CYTARABINE
     Dosage: 300 MG
     Dates: start: 20230318, end: 20230318
  4. CEFOPERAZONE SODIUM\SULBACTAM SODIUM [Concomitant]
     Active Substance: CEFOPERAZONE SODIUM\SULBACTAM SODIUM
     Indication: Pneumonia
     Dosage: 1.5 G, 3X/DAY
     Route: 041
     Dates: start: 20230314, end: 20230318
  5. ALLOPURINOL [Concomitant]
     Active Substance: ALLOPURINOL
     Indication: Blood uric acid increased
     Dosage: 0.25 G, 1X/DAY
     Route: 048
     Dates: start: 20230315, end: 20230321
  6. AZASETRON HYDROCHLORIDE [Concomitant]
     Active Substance: AZASETRON HYDROCHLORIDE
     Indication: Vomiting
     Dosage: 10 MG, 1X/DAY
     Route: 041
     Dates: start: 20230317, end: 20230318

REACTIONS (5)
  - Pyrexia [Recovering/Resolving]
  - Abdominal pain upper [Recovering/Resolving]
  - Vomiting [Recovering/Resolving]
  - Diarrhoea [Recovering/Resolving]
  - Nausea [Recovering/Resolving]

NARRATIVE: CASE EVENT DATE: 20230317
